FAERS Safety Report 8513398-X (Version None)
Quarter: 2012Q3

REPORT INFORMATION
  Report Type: 
  Country: None (occurrence: None)
  Receive Date: 20120717
  Receipt Date: 20120713
  Transmission Date: 20120928
  Serious: Yes (Death)
  Sender: FDA-Public Use
  Company Number: US-BRISTOL-MYERS SQUIBB COMPANY-16766487

PATIENT
  Age: 81 Year
  Sex: Female

DRUGS (1)
  1. REYATAZ [Suspect]
     Indication: HIV INFECTION
     Dates: start: 20120615, end: 20120713

REACTIONS (1)
  - DEATH [None]
